FAERS Safety Report 24052006 (Version 1)
Quarter: 2024Q3

REPORT INFORMATION
  Report Type: Spontaneous
  Country: CA (occurrence: CA)
  Receive Date: 20240704
  Receipt Date: 20240704
  Transmission Date: 20241017
  Serious: Yes (Other)
  Sender: DAIICHI
  Company Number: CA-AstraZeneca-2024A147211

PATIENT
  Age: 48 Year
  Sex: Female

DRUGS (1)
  1. TRASTUZUMAB DERUXTECAN [Suspect]
     Active Substance: TRASTUZUMAB DERUXTECAN
     Indication: Product used for unknown indication
     Dosage: 355 MG, ONCE EVERY 3 WK
     Route: 042

REACTIONS (3)
  - General physical health deterioration [Unknown]
  - Jaundice [Unknown]
  - Anaemia [Unknown]
